FAERS Safety Report 19370054 (Version 2)
Quarter: 2021Q2

REPORT INFORMATION
  Report Type: Report from Study
  Country: GB (occurrence: GB)
  Receive Date: 20210604
  Receipt Date: 20210610
  Transmission Date: 20210717
  Serious: Yes (Hospitalization)
  Sender: FDA-Public Use
  Company Number: NVSC2021GB124544

PATIENT
  Age: 16 Year
  Sex: Male
  Weight: 86.4 kg

DRUGS (12)
  1. VITAMIN K1 [Concomitant]
     Active Substance: PHYTONADIONE
     Indication: GENERAL PHYSICAL CONDITION
     Dosage: UNK
     Route: 065
     Dates: start: 20210402
  2. METOCLOPRAMIDE. [Concomitant]
     Active Substance: METOCLOPRAMIDE
     Indication: ANTIEMETIC SUPPORTIVE CARE
     Dosage: UNK
     Route: 065
     Dates: start: 20201220
  3. SEVREDOL [Concomitant]
     Active Substance: MORPHINE
     Indication: ANALGESIC THERAPY
     Dosage: UNK
     Route: 065
     Dates: start: 20200301
  4. LORATADINE. [Concomitant]
     Active Substance: LORATADINE
     Indication: ANTIALLERGIC THERAPY
     Dosage: UNK
     Route: 065
     Dates: start: 20201207
  5. POSACONAZOLE [Concomitant]
     Active Substance: POSACONAZOLE
     Indication: ANTIFUNGAL PROPHYLAXIS
     Dosage: UNK
     Route: 065
     Dates: start: 20210209
  6. DIPROBASE OINTMENT [Concomitant]
     Indication: RASH MACULO-PAPULAR
     Dosage: UNK
     Route: 065
     Dates: start: 20210412
  7. ONDANSETRON [Concomitant]
     Active Substance: ONDANSETRON
     Indication: PROPHYLAXIS OF NAUSEA AND VOMITING
     Dosage: UNK
     Route: 065
     Dates: start: 20201219
  8. COTRIMOXAZOLE [Concomitant]
     Active Substance: SULFAMETHOXAZOLE\TRIMETHOPRIM
     Indication: PROPHYLAXIS
     Dosage: UNK
     Route: 065
     Dates: start: 20210503
  9. CYCLIZINE [Concomitant]
     Active Substance: CYCLIZINE
     Indication: PROPHYLAXIS OF NAUSEA AND VOMITING
     Dosage: UNK
     Route: 065
     Dates: start: 20201220
  10. TISAGENLECLEUCEL. [Suspect]
     Active Substance: TISAGENLECLEUCEL
     Indication: LYMPHOMA
     Dosage: 0.3 UNK, ONCE/SINGLE
     Route: 042
     Dates: start: 20210407
  11. ACYCLOVIR. [Concomitant]
     Active Substance: ACYCLOVIR
     Indication: GENERAL PHYSICAL CONDITION
     Dosage: UNK
     Route: 065
     Dates: start: 20210406
  12. CROTAMITON [Concomitant]
     Active Substance: CROTAMITON
     Indication: RASH MACULO-PAPULAR
     Dosage: UNK
     Route: 065
     Dates: start: 20210502

REACTIONS (1)
  - Motor dysfunction [Not Recovered/Not Resolved]

NARRATIVE: CASE EVENT DATE: 20210601
